FAERS Safety Report 7988646-5 (Version None)
Quarter: 2011Q4

REPORT INFORMATION
  Report Type: 
  Country: None (occurrence: None)
  Receive Date: 20111218
  Receipt Date: 20111207
  Transmission Date: 20120403
  Serious: Yes (Other)
  Sender: FDA-Public Use
  Company Number: US-ASTRAZENECA-2011SE52845

PATIENT
  Age: 54 Year
  Sex: Male
  Weight: 104.3 kg

DRUGS (12)
  1. DIAZEPAM [Concomitant]
  2. AMBIEN [Concomitant]
     Indication: SLEEP DISORDER
  3. TRAMADOL HCL [Concomitant]
  4. DIABETES MEDICATIONS [Concomitant]
  5. LACTULOSE [Concomitant]
  6. CELEXA [Concomitant]
  7. ANALPRAM [Concomitant]
  8. PHENERGEN [Concomitant]
  9. NEXIUM [Suspect]
     Indication: GASTROOESOPHAGEAL REFLUX DISEASE
     Route: 048
     Dates: start: 20060101
  10. PROTRAM [Concomitant]
  11. FLUMAX [Concomitant]
     Indication: PROSTATIC DISORDER
  12. COLACE [Concomitant]

REACTIONS (3)
  - DRUG INEFFECTIVE [None]
  - GASTROOESOPHAGEAL REFLUX DISEASE [None]
  - SKIN CANCER [None]
